FAERS Safety Report 18190977 (Version 1)
Quarter: 2020Q3

REPORT INFORMATION
  Report Type: Spontaneous
  Country: GB (occurrence: GB)
  Receive Date: 20200824
  Receipt Date: 20200824
  Transmission Date: 20201105
  Serious: Yes (Hospitalization)
  Sender: FDA-Public Use
  Company Number: GB-FRESENIUS KABI-FK202008595

PATIENT
  Age: 78 Year
  Sex: Female

DRUGS (7)
  1. COLISTIMETHATE (MANUFACTURER UNKNOWN) [Suspect]
     Active Substance: COLISTIMETHATE SODIUM
     Indication: ENDOCARDITIS PSEUDOMONAL
     Dosage: 9 MEGAUNITS (MU) LOADING DOSE
     Route: 065
  2. CEFIDEROCOL. [Suspect]
     Active Substance: CEFIDEROCOL
     Route: 065
  3. GENTAMICIN. [Concomitant]
     Active Substance: GENTAMICIN
     Indication: ENDOCARDITIS PSEUDOMONAL
     Dosage: INTERMITTENT AND STOPPED AFTER THE THIRD DOSE ON DAY 5.
     Route: 065
  4. CEFIDEROCOL. [Suspect]
     Active Substance: CEFIDEROCOL
     Indication: ENDOCARDITIS PSEUDOMONAL
     Dosage: FOR THE FIRST 2 DAYS
     Route: 065
  5. MEROPENEM. [Concomitant]
     Active Substance: MEROPENEM
     Indication: ENDOCARDITIS PSEUDOMONAL
     Route: 065
  6. COLISTIMETHATE (MANUFACTURER UNKNOWN) [Suspect]
     Active Substance: COLISTIMETHATE SODIUM
     Dosage: 3 MU
     Route: 065
  7. COLISTIMETHATE (MANUFACTURER UNKNOWN) [Suspect]
     Active Substance: COLISTIMETHATE SODIUM
     Dosage: 4.5 MU
     Route: 065

REACTIONS (1)
  - Neutropenia [Recovered/Resolved]
